FAERS Safety Report 9498437 (Version 1)
Quarter: 2013Q3

REPORT INFORMATION
  Report Type: Spontaneous
  Country: ES (occurrence: ES)
  Receive Date: 20130904
  Receipt Date: 20130904
  Transmission Date: 20140515
  Serious: Yes (Other)
  Sender: FDA-Public Use
  Company Number: ES-GLAXOSMITHKLINE-B0918107A

PATIENT
  Age: 7 Year
  Sex: Female

DRUGS (1)
  1. AVAMYS [Suspect]
     Indication: RHINITIS ALLERGIC
     Route: 045
     Dates: start: 20130215, end: 2013

REACTIONS (1)
  - Daydreaming [Recovered/Resolved]
